FAERS Safety Report 9752937 (Version 3)
Quarter: 2014Q2

REPORT INFORMATION
  Report Type: Spontaneous
  Country: FR (occurrence: FR)
  Receive Date: 20131213
  Receipt Date: 20140523
  Transmission Date: 20141212
  Serious: Yes (Death, Hospitalization, Other)
  Sender: FDA-Public Use
  Company Number: FR-JNJFOC-20131203061

PATIENT
  Sex: Male

DRUGS (1)
  1. ZYTIGA [Suspect]
     Indication: PROSTATE CANCER
     Dosage: 250 MG
     Route: 048
     Dates: start: 201307

REACTIONS (9)
  - Renal failure [Fatal]
  - Hypernatraemia [Fatal]
  - Hepatocellular injury [Fatal]
  - Hypokalaemia [Fatal]
  - Disease progression [Fatal]
  - Haematemesis [Unknown]
  - Lung disorder [Unknown]
  - Drug prescribing error [Unknown]
  - Off label use [Unknown]
